FAERS Safety Report 9200168 (Version 1)
Quarter: 2013Q1

REPORT INFORMATION
  Report Type: Spontaneous
  Country: ES (occurrence: ES)
  Receive Date: 20130329
  Receipt Date: 20130329
  Transmission Date: 20140127
  Serious: Yes (Hospitalization)
  Sender: FDA-Public Use
  Company Number: ES-SANOFI-AVENTIS-2013SA031310

PATIENT
  Age: 53 Year
  Sex: Female

DRUGS (7)
  1. DEPAKINE [Suspect]
     Indication: SCHIZOAFFECTIVE DISORDER BIPOLAR TYPE
     Dosage: 2-0-2
     Route: 048
     Dates: start: 2009, end: 20120921
  2. SEGURIL [Interacting]
     Indication: CARDIAC FAILURE CONGESTIVE
     Dosage: 1/2-0-1/2
     Route: 048
     Dates: start: 201207, end: 20120921
  3. ZYPREXA [Interacting]
     Indication: SCHIZOPHRENIA
     Dosage: 1/2-0-1/2?STRENGTH: 20MG
     Route: 048
     Dates: start: 2009, end: 20120921
  4. GLUCOPHAGE [Concomitant]
     Indication: TYPE 2 DIABETES MELLITUS
     Dosage: 1-1-1?50 TABLETS S
     Route: 048
     Dates: start: 2009
  5. CLOPIDOGREL [Concomitant]
     Indication: PROPHYLAXIS
     Dosage: 0-1-0?STRENGTH: 75 MG
     Route: 048
     Dates: start: 2009
  6. URBASON [Concomitant]
     Dosage: STRENGTH: 20 MG?100 AMPULE
     Route: 042
     Dates: start: 20120918
  7. LEVOFLOXACIN [Concomitant]
     Indication: CHRONIC OBSTRUCTIVE PULMONARY DISEASE
     Dosage: 500
     Route: 048
     Dates: start: 20120918

REACTIONS (3)
  - Inappropriate antidiuretic hormone secretion [Recovered/Resolved]
  - Drug interaction [Unknown]
  - Encephalopathy [Recovered/Resolved]
